FAERS Safety Report 23516702 (Version 1)
Quarter: 2024Q1

REPORT INFORMATION
  Report Type: Spontaneous
  Country: US (occurrence: US)
  Receive Date: 20240213
  Receipt Date: 20240213
  Transmission Date: 20240410
  Serious: No
  Sender: FDA-Public Use
  Company Number: US-ELI_LILLY_AND_COMPANY-US202402006981

PATIENT
  Age: 67 Year
  Sex: Female

DRUGS (14)
  1. HUMULIN R U-500 [Suspect]
     Active Substance: INSULIN HUMAN
     Indication: Type 2 diabetes mellitus
     Dosage: 150 U, EACH MORNING
     Route: 065
     Dates: start: 2022
  2. HUMULIN R U-500 [Suspect]
     Active Substance: INSULIN HUMAN
     Indication: Type 2 diabetes mellitus
     Dosage: 150 U, EACH MORNING
     Route: 065
     Dates: start: 2022
  3. HUMULIN R U-500 [Suspect]
     Active Substance: INSULIN HUMAN
     Indication: Type 2 diabetes mellitus
     Dosage: 150 U, EACH MORNING
     Route: 065
     Dates: start: 2022
  4. HUMULIN R U-500 [Suspect]
     Active Substance: INSULIN HUMAN
     Dosage: 80 U, EACH EVENING (AT NIGHT)
     Route: 065
     Dates: start: 2022
  5. HUMULIN R U-500 [Suspect]
     Active Substance: INSULIN HUMAN
     Dosage: 80 U, EACH EVENING (AT NIGHT)
     Route: 065
     Dates: start: 2022
  6. HUMULIN R U-500 [Suspect]
     Active Substance: INSULIN HUMAN
     Dosage: 80 U, EACH EVENING (AT NIGHT)
     Route: 065
     Dates: start: 2022
  7. HUMULIN R U-500 [Suspect]
     Active Substance: INSULIN HUMAN
     Dosage: 150 U, EACH MORNING
     Route: 065
     Dates: start: 2022
  8. HUMULIN R U-500 [Suspect]
     Active Substance: INSULIN HUMAN
     Dosage: 150 U, EACH MORNING
     Route: 065
     Dates: start: 2022
  9. HUMULIN R U-500 [Suspect]
     Active Substance: INSULIN HUMAN
     Dosage: 80 U, EACH EVENING (AT NIGHT)
     Route: 065
     Dates: start: 2022
  10. HUMULIN R U-500 [Suspect]
     Active Substance: INSULIN HUMAN
     Dosage: 80 U, EACH EVENING (AT NIGHT)
     Route: 065
     Dates: start: 2022
  11. HUMULIN R U-500 [Suspect]
     Active Substance: INSULIN HUMAN
     Dosage: 150 U, EACH MORNING
     Route: 065
     Dates: start: 2022
  12. HUMULIN R U-500 [Suspect]
     Active Substance: INSULIN HUMAN
     Dosage: 150 U, EACH MORNING
     Route: 065
     Dates: start: 2022
  13. HUMULIN R U-500 [Suspect]
     Active Substance: INSULIN HUMAN
     Dosage: 80 U, EACH EVENING (AT NIGHT)
     Route: 065
     Dates: start: 2022
  14. HUMULIN R U-500 [Suspect]
     Active Substance: INSULIN HUMAN
     Dosage: 80 U, EACH EVENING (AT NIGHT)
     Route: 065
     Dates: start: 2022

REACTIONS (4)
  - Visual impairment [Unknown]
  - Memory impairment [Unknown]
  - Drug ineffective [Unknown]
  - Blood glucose abnormal [Unknown]
